FAERS Safety Report 9706768 (Version 1)
Quarter: 2013Q4

REPORT INFORMATION
  Report Type: Spontaneous
  Country: US (occurrence: None)
  Receive Date: 20131122
  Receipt Date: 20131122
  Transmission Date: 20140711
  Serious: Yes (Death)
  Sender: FDA-Public Use
  Company Number: None

PATIENT
  Age: 49 Year
  Sex: Female

DRUGS (1)
  1. HALAVEN [Suspect]
     Indication: BREAST CANCER
     Dosage: 2.3MG  DAY 1 AND DAY 8 EVERY 21 DAYS IV
     Route: 042
     Dates: start: 20130930, end: 20131022

REACTIONS (1)
  - Death [None]
